FAERS Safety Report 12833697 (Version 2)
Quarter: 2016Q4

REPORT INFORMATION
  Report Type: Spontaneous
  Country: FR (occurrence: FR)
  Receive Date: 20161010
  Receipt Date: 20161010
  Transmission Date: 20170207
  Serious: Yes (Life-Threatening, Hospitalization)
  Sender: FDA-Public Use
  Company Number: FR-009507513-1610FRA001771

PATIENT
  Age: 79 Year
  Sex: Male

DRUGS (10)
  1. PROGLICEM [Suspect]
     Active Substance: DIAZOXIDE
     Dosage: 2 TABLETS, DAILY
     Route: 048
     Dates: start: 201603
  2. PROGLICEM [Suspect]
     Active Substance: DIAZOXIDE
     Dosage: 200 MG, ONCE
     Route: 048
     Dates: start: 20151224, end: 20151224
  3. FORTZAAR 100 MG/12.5 MG COMPRIME PELLICULE [Concomitant]
     Active Substance: HYDROCHLOROTHIAZIDE\LOSARTAN POTASSIUM
     Route: 048
  4. PROGLICEM [Suspect]
     Active Substance: DIAZOXIDE
     Dosage: 300 MG, ONCE
     Route: 048
     Dates: start: 20151223, end: 20151223
  5. DEXTROSE. [Concomitant]
     Active Substance: DEXTROSE
     Dosage: UNK
     Dates: start: 20151215
  6. SOMATULINE AUTOGEL [Concomitant]
     Active Substance: LANREOTIDE ACETATE
     Dosage: 1 DF, MONTHLY
  7. PROGLICEM [Suspect]
     Active Substance: DIAZOXIDE
     Dosage: 100 MG, ONCE
     Route: 048
     Dates: start: 20151226, end: 20151226
  8. PROGLICEM [Suspect]
     Active Substance: DIAZOXIDE
     Dosage: 300 MG, ONCE
     Route: 048
     Dates: start: 20151225, end: 20151225
  9. PROGLICEM [Suspect]
     Active Substance: DIAZOXIDE
     Indication: INSULINOMA
     Dosage: 200 MG, TID
     Route: 048
     Dates: start: 20151215, end: 20151226
  10. PROGLICEM [Suspect]
     Active Substance: DIAZOXIDE
     Dosage: 200 MG, DAILY
     Route: 048
     Dates: start: 20151222, end: 20151222

REACTIONS (3)
  - Circulatory collapse [Recovered/Resolved]
  - Acute kidney injury [Recovered/Resolved]
  - Thrombocytopenia [Recovered/Resolved]

NARRATIVE: CASE EVENT DATE: 20151216
